FAERS Safety Report 19436419 (Version 1)
Quarter: 2021Q2

REPORT INFORMATION
  Report Type: Spontaneous
  Country: NL (occurrence: NL)
  Receive Date: 20210618
  Receipt Date: 20210618
  Transmission Date: 20210717
  Serious: Yes (Other)
  Sender: FDA-Public Use
  Company Number: NL-ASTRAZENECA-2021A449679

PATIENT
  Age: 31 Year
  Sex: Male

DRUGS (8)
  1. PROPOFOL. [Suspect]
     Active Substance: PROPOFOL
     Indication: SEDATION
     Route: 042
  2. LORAZEPAM. [Suspect]
     Active Substance: LORAZEPAM
     Indication: SEDATION
     Route: 065
  3. ERYTHROMYCIN. [Concomitant]
     Active Substance: ERYTHROMYCIN
     Indication: PRODUCT USED FOR UNKNOWN INDICATION
     Dosage: UNK
     Route: 065
  4. GAMMA?HYDROXYBUTYRATE [Concomitant]
     Active Substance: OXYBATE
     Indication: SEDATION
     Route: 065
  5. QUETIAPINE. [Suspect]
     Active Substance: QUETIAPINE
     Indication: SEDATION
     Route: 048
  6. MIDAZOLAM. [Suspect]
     Active Substance: MIDAZOLAM
     Indication: SEDATION
     Route: 065
  7. PROPOFOL. [Suspect]
     Active Substance: PROPOFOL
     Indication: SEDATION
     Route: 065
  8. SUFENTANIL [Suspect]
     Active Substance: SUFENTANIL
     Indication: SEDATION
     Dosage: 10UG/INHAL PER HOUR
     Route: 065

REACTIONS (4)
  - Rhabdomyolysis [Recovered/Resolved]
  - Respiratory depression [Recovered/Resolved]
  - Drug effect less than expected [Unknown]
  - Pyrexia [Recovered/Resolved]
